FAERS Safety Report 6232234-8 (Version None)
Quarter: 2009Q2

REPORT INFORMATION
  Report Type: 
  Country: None (occurrence: None)
  Receive Date: 20090616
  Receipt Date: 20090616
  Transmission Date: 20091009
  Serious: Yes (Hospitalization)
  Sender: FDA-Public Use
  Company Number: None

PATIENT
  Age: 56 Year
  Sex: Female
  Weight: 116.5744 kg

DRUGS (2)
  1. HERCEPTIN [Suspect]
     Indication: BREAST CANCER
     Dosage: HERCEPTIN EVERY WEEK IV
     Route: 042
     Dates: start: 20090508
  2. ABRAXANE [Suspect]
     Indication: BREAST CANCER
     Dosage: EVERY WEEK IV
     Route: 042

REACTIONS (1)
  - BREAST CELLULITIS [None]
